FAERS Safety Report 6904697-3 (Version None)
Quarter: 2010Q3

REPORT INFORMATION
  Report Type: 
  Country: None (occurrence: None)
  Receive Date: 20100804
  Receipt Date: 20100728
  Transmission Date: 20110219
  Serious: Yes (Hospitalization)
  Sender: FDA-Public Use
  Company Number: US-BIOGENIDEC-2010BI002240

PATIENT
  Age: 50 Year
  Sex: Female
  Weight: 72 kg

DRUGS (2)
  1. TYSABRI [Suspect]
     Indication: MULTIPLE SCLEROSIS
     Route: 042
     Dates: start: 20090801
  2. VESICARE [Concomitant]
     Indication: URINARY INCONTINENCE
     Dates: start: 20030101

REACTIONS (2)
  - FEELING ABNORMAL [None]
  - H1N1 INFLUENZA [None]
